FAERS Safety Report 26025421 (Version 1)
Quarter: 2025Q4

REPORT INFORMATION
  Report Type: Spontaneous
  Country: US (occurrence: US)
  Receive Date: 20251111
  Receipt Date: 20251111
  Transmission Date: 20260117
  Serious: Yes (Hospitalization, Other)
  Sender: BAXTER
  Company Number: US-MLMSERVICE-20251029-PI690961-00029-1

PATIENT
  Age: 17 Year

DRUGS (1)
  1. ACETAMINOPHEN [Suspect]
     Active Substance: ACETAMINOPHEN
     Indication: Product used for unknown indication
     Dosage: 9 G TOTAL(CONCENTRATION OF 61.0MCG/ML.)
     Route: 065

REACTIONS (9)
  - Intentional overdose [Recovering/Resolving]
  - Hyperbilirubinaemia [Recovering/Resolving]
  - Hepatic steatosis [Recovering/Resolving]
  - International normalised ratio increased [Recovering/Resolving]
  - Abdominal tenderness [Recovering/Resolving]
  - Jaundice [Recovering/Resolving]
  - Abdominal pain upper [Recovering/Resolving]
  - Aspartate aminotransferase increased [Recovering/Resolving]
  - Alanine aminotransferase increased [Recovering/Resolving]
